FAERS Safety Report 4645119-5 (Version None)
Quarter: 2005Q2

REPORT INFORMATION
  Report Type: 
  Country: None (occurrence: None)
  Receive Date: 20050422
  Receipt Date: 20050411
  Transmission Date: 20051028
  Serious: No
  Sender: FDA-Public Use
  Company Number: 2005GB00712

PATIENT
  Age: 88 Year
  Sex: Male
  Weight: 84.5 kg

DRUGS (1)
  1. OMEPRAZOLE [Suspect]
     Indication: HIATUS HERNIA
     Dosage: 10 MG PO
     Route: 048
     Dates: start: 20010101, end: 20050301

REACTIONS (1)
  - DEPRESSION SUICIDAL [None]
